FAERS Safety Report 25958490 (Version 1)
Quarter: 2025Q4

REPORT INFORMATION
  Report Type: Spontaneous
  Country: ZA (occurrence: ZA)
  Receive Date: 20251024
  Receipt Date: 20251024
  Transmission Date: 20260118
  Serious: Yes (Other)
  Sender: PFIZER
  Company Number: ZA-PFIZER INC-PV202500125597

PATIENT
  Age: 24 Year
  Sex: Female

DRUGS (2)
  1. METHOTREXATE SODIUM [Suspect]
     Active Substance: METHOTREXATE SODIUM
     Dosage: 10 MG, WEEKLY
     Dates: start: 202108, end: 202202
  2. LEFLUNOMIDE [Concomitant]
     Active Substance: LEFLUNOMIDE
     Dosage: 20 MG, DAILY
     Dates: start: 202111, end: 202111

REACTIONS (2)
  - Systemic lupus erythematosus [Unknown]
  - Drug intolerance [Unknown]

NARRATIVE: CASE EVENT DATE: 20211117
